FAERS Safety Report 24572002 (Version 1)
Quarter: 2024Q4

REPORT INFORMATION
  Report Type: Spontaneous
  Country: US (occurrence: None)
  Receive Date: 20241031
  Receipt Date: 20241031
  Transmission Date: 20250114
  Serious: Yes (Life-Threatening)
  Sender: Public
  Company Number: None

PATIENT
  Age: 73 Year
  Sex: Male

DRUGS (1)
  1. EMPAGLIFLOZIN [Suspect]
     Active Substance: EMPAGLIFLOZIN

REACTIONS (3)
  - Euglycaemic diabetic ketoacidosis [None]
  - Pulseless electrical activity [None]
  - Cardiac arrest [None]

NARRATIVE: CASE EVENT DATE: 20240610
